FAERS Safety Report 8414596-6 (Version None)
Quarter: 2012Q2

REPORT INFORMATION
  Report Type: 
  Country: None (occurrence: None)
  Receive Date: 20120605
  Receipt Date: 20120529
  Transmission Date: 20120825
  Serious: Yes (Hospitalization)
  Sender: FDA-Public Use
  Company Number: JP-PFIZER INC-2012103127

PATIENT
  Age: 71 Year
  Sex: Male
  Weight: 73 kg

DRUGS (19)
  1. CARVEDILOL [Concomitant]
     Dosage: 10 MG, 2X/DAY
     Route: 048
  2. KAKKON-TO [Concomitant]
     Dosage: 1 DF, 2X/DAY
     Route: 048
  3. SENNOSIDE A [Concomitant]
     Dosage: 12 MG, 1X/DAY
     Route: 048
  4. IMIDAPRIL HYDROCHLORIDE [Concomitant]
     Dosage: 5 MG, 1X/DAY
     Route: 048
  5. LYRICA [Suspect]
     Indication: NEUROPATHY PERIPHERAL
     Dosage: 25 MG, 1X/DAY
     Route: 048
  6. OMEPRAZOLE [Concomitant]
     Dosage: 10 MG, 1X/DAY
     Route: 048
  7. TRICHLORMETHIAZIDE [Concomitant]
     Dosage: 1 MG, 1X/DAY
     Route: 048
  8. ZOLPIDEM [Concomitant]
     Indication: INSOMNIA
     Dosage: 50 MG, AS NEEDED
     Route: 048
  9. CYMBALTA [Concomitant]
     Indication: DEPRESSION
     Dosage: 20 MG, 1X/DAY
     Route: 048
     Dates: end: 20120420
  10. OXATOMIDE [Concomitant]
     Dosage: 30 MG, 2X/DAY
     Route: 048
  11. ZOLPIDEM [Concomitant]
     Dosage: 10 MG, 1X/DAY
     Route: 048
  12. CELEBREX [Concomitant]
     Dosage: 100 MG, 2X/DAY
     Route: 048
  13. VALSARTAN [Concomitant]
     Dosage: 80 MG, 1X/DAY
     Route: 048
  14. DOXAZOSIN MESYLATE [Concomitant]
     Indication: HYPERTENSION
     Dosage: 2 MG, 1X/DAY
     Route: 048
     Dates: end: 20120417
  15. NIFEDIPINE [Concomitant]
     Dosage: 20 MG, 1X/DAY
     Route: 048
  16. PLAVIX [Concomitant]
     Dosage: 75 MG, 1X/DAY
     Route: 048
  17. MEXIRATE [Concomitant]
     Dosage: 100 MG, 2X/DAY
     Route: 048
  18. LYRICA [Suspect]
     Dosage: 75 MG, 1X/DAY
     Route: 048
     Dates: end: 20120416
  19. ASPIRIN [Concomitant]
     Dosage: 100 MG, 1X/DAY
     Route: 048

REACTIONS (3)
  - HAEMORRHAGE [None]
  - SYNCOPE [None]
  - FALL [None]
